FAERS Safety Report 26077099 (Version 1)
Quarter: 2025Q4

REPORT INFORMATION
  Report Type: Spontaneous
  Country: US (occurrence: None)
  Receive Date: 20251121
  Receipt Date: 20251121
  Transmission Date: 20260118
  Serious: Yes (Other)
  Sender: FDA-CTU
  Company Number: None

PATIENT
  Age: 67 Year
  Sex: Female
  Weight: 82.35 kg

DRUGS (4)
  1. ZEPBOUND [Suspect]
     Active Substance: TIRZEPATIDE
     Indication: Obesity
     Dates: start: 20250314, end: 20250717
  2. ROSUVASTATIN [Concomitant]
     Active Substance: ROSUVASTATIN
     Dates: start: 20220526
  3. RAMIPRIL [Concomitant]
     Active Substance: RAMIPRIL
     Dates: start: 20040719
  4. ESOMEPRAZOLE [Concomitant]
     Active Substance: ESOMEPRAZOLE
     Dates: start: 20200101

REACTIONS (3)
  - Visual impairment [None]
  - Vision blurred [None]
  - Visual field defect [None]

NARRATIVE: CASE EVENT DATE: 20250717
